FAERS Safety Report 6363648-3 (Version None)
Quarter: 2009Q3

REPORT INFORMATION
  Report Type: 
  Country: None (occurrence: None)
  Receive Date: 20090919
  Receipt Date: 20090707
  Transmission Date: 20100115
  Serious: Yes (Hospitalization, Other)
  Sender: FDA-Public Use
  Company Number: US-ABBOTT-09P-163-0583707-00

PATIENT
  Sex: Female
  Weight: 63.56 kg

DRUGS (18)
  1. HUMIRA [Suspect]
     Indication: RHEUMATOID ARTHRITIS
     Route: 058
     Dates: start: 20060101, end: 20060101
  2. HUMIRA [Suspect]
     Route: 058
     Dates: start: 20080301, end: 20081101
  3. HUMIRA [Suspect]
  4. MIRALAX [Concomitant]
     Indication: CONSTIPATION
     Route: 048
  5. CALCIUM [Concomitant]
     Indication: MINERAL SUPPLEMENTATION
     Route: 048
  6. OPTIVAR [Concomitant]
     Indication: HYPERSENSITIVITY
     Route: 047
  7. ALBUTEROL [Concomitant]
     Indication: ASTHMA
     Route: 055
  8. CLINORIL [Concomitant]
     Indication: DRUG USE FOR UNKNOWN INDICATION
  9. XANAX [Concomitant]
     Indication: DEPRESSION
     Route: 048
  10. NEURONTIN [Concomitant]
     Indication: NEUROPATHY PERIPHERAL
     Route: 048
  11. PRAVACHOL [Concomitant]
     Indication: BLOOD CHOLESTEROL INCREASED
     Route: 048
  12. RESTORIL [Concomitant]
     Indication: INSOMNIA
     Route: 048
  13. LASIX [Concomitant]
     Indication: FLUID RETENTION
     Route: 048
  14. FOSAMAX [Concomitant]
     Indication: OSTEOPOROSIS
     Route: 048
  15. NEXIUM [Concomitant]
     Indication: GASTROOESOPHAGEAL REFLUX DISEASE
     Route: 048
  16. LORCET-HD [Concomitant]
     Indication: PAIN
     Dosage: 10/650 MG
     Route: 048
  17. MECLIZINE [Concomitant]
     Indication: DIZZINESS
     Route: 048
  18. XOPENEX [Concomitant]
     Indication: RESPIRATORY DISORDER
     Route: 055

REACTIONS (3)
  - DRUG DOSE OMISSION [None]
  - LUNG INFECTION [None]
  - LUNG NEOPLASM MALIGNANT [None]
